FAERS Safety Report 20172957 (Version 1)
Quarter: 2021Q4

REPORT INFORMATION
  Report Type: Spontaneous
  Country: FR (occurrence: FR)
  Receive Date: 20211211
  Receipt Date: 20211211
  Transmission Date: 20220304
  Serious: Yes (Hospitalization)
  Sender: FDA-Public Use
  Company Number: None

PATIENT
  Age: 51 Year
  Sex: Female
  Weight: 75 kg

DRUGS (4)
  1. AVASTIN [Suspect]
     Active Substance: BEVACIZUMAB
     Indication: Rectosigmoid cancer metastatic
     Dosage: THE MOST RECENT DOSE WAS TAKEN ON 04/NOV/2021
     Route: 065
     Dates: start: 20210128
  2. OXALIPLATIN [Suspect]
     Active Substance: OXALIPLATIN
     Indication: Rectosigmoid cancer metastatic
     Dosage: THE MOST RECENT DOSE WAS ADMINISTERED ON 27/MAY/2021.
     Route: 042
     Dates: start: 20210112
  3. FLUOROURACIL [Suspect]
     Active Substance: FLUOROURACIL
     Indication: Rectosigmoid cancer metastatic
     Dosage: THE MOST RECENT DOSE WAS ADMINISTERED ON 04/NOV/2021.
     Route: 065
     Dates: start: 20210112
  4. IRINOTECAN [Suspect]
     Active Substance: IRINOTECAN
     Indication: Rectosigmoid cancer metastatic
     Dosage: THE MOST RECENT DOSE WAS ADMINISTERED ON 17/JUN/2021.
     Route: 065
     Dates: start: 20210112

REACTIONS (1)
  - Nodular regenerative hyperplasia [Recovering/Resolving]

NARRATIVE: CASE EVENT DATE: 20211101
